FAERS Safety Report 6591021-1 (Version None)
Quarter: 2010Q1

REPORT INFORMATION
  Report Type: 
  Country: None (occurrence: None)
  Receive Date: 20100219
  Receipt Date: 20100209
  Transmission Date: 20100710
  Serious: Yes (Other)
  Sender: FDA-Public Use
  Company Number: BR-ABBOTT-08P-020-0485599-00

PATIENT
  Sex: Female
  Weight: 57 kg

DRUGS (9)
  1. HUMIRA [Suspect]
     Indication: RHEUMATOID ARTHRITIS
     Route: 058
  2. HUMIRA [Suspect]
     Route: 058
  3. METHOTREXATE [Concomitant]
     Indication: RHEUMATOID ARTHRITIS
     Route: 048
  4. VALSARTAN/HYDROCHLOORTHIAZIDE [Concomitant]
     Indication: BLOOD PRESSURE
     Dosage: 80 MG/12.5
     Route: 048
  5. CALCIUM CITRATE W/VITAMIN D NOS [Concomitant]
     Indication: MINERAL SUPPLEMENTATION
     Dosage: 500 MG/400 MG
     Route: 048
  6. DIGOXIN [Concomitant]
     Indication: CARDIAC DISORDER
  7. FUROSEMIDE [Concomitant]
     Indication: DIURETIC THERAPY
     Route: 048
  8. OMEPRAZOLE [Concomitant]
     Indication: PROPHYLAXIS
  9. OMEPRAZOLE [Concomitant]
     Indication: GASTRIC DISORDER

REACTIONS (2)
  - FALL [None]
  - UPPER LIMB FRACTURE [None]
